FAERS Safety Report 10832152 (Version 1)
Quarter: 2015Q1

REPORT INFORMATION
  Report Type: Spontaneous
  Country: US (occurrence: US)
  Receive Date: 20150219
  Receipt Date: 20150219
  Transmission Date: 20150721
  Serious: No
  Sender: FDA-Public Use
  Company Number: US-RECKITT BENCKISER PHARMACEUTICAL, INC-RB-62483-2014

PATIENT

DRUGS (5)
  1. SUBUTEX [Suspect]
     Active Substance: BUPRENORPHINE HYDROCHLORIDE
     Indication: DRUG DEPENDENCE
     Route: 060
     Dates: start: 2011
  2. KLONOPIN [Suspect]
     Active Substance: CLONAZEPAM
     Dosage: UNDERGOING A MEDICALLY SUPERVISED TAPER
     Route: 048
  3. KLONOPIN [Suspect]
     Active Substance: CLONAZEPAM
     Indication: ANXIETY
     Route: 048
  4. SUBOXONE [Suspect]
     Active Substance: BUPRENORPHINE HYDROCHLORIDE\NALOXONE HYDROCHLORIDE
     Indication: DRUG DEPENDENCE
     Route: 060
     Dates: start: 2011, end: 2011
  5. BUPRENORPHINE GENERIC [Suspect]
     Active Substance: BUPRENORPHINE
     Indication: DRUG DEPENDENCE
     Dosage: UNDERGOING A MEDICALLY SUPERVISED TAPER; CUTTING TABLET TO ACHIEVE VARIOUS REDUCED DOSES
     Route: 060

REACTIONS (11)
  - Restlessness [Not Recovered/Not Resolved]
  - Confusional state [Not Recovered/Not Resolved]
  - Tinnitus [Recovered/Resolved]
  - Hypersensitivity [Recovered/Resolved]
  - Hyperhidrosis [Recovered/Resolved]
  - Anxiety [Not Recovered/Not Resolved]
  - Headache [Not Recovered/Not Resolved]
  - Feeling abnormal [Not Recovered/Not Resolved]
  - Speech disorder [Recovered/Resolved]
  - Drug withdrawal syndrome [Not Recovered/Not Resolved]
  - Wrong technique in drug usage process [Not Recovered/Not Resolved]

NARRATIVE: CASE EVENT DATE: 2011
